FAERS Safety Report 7450543-1 (Version None)
Quarter: 2011Q2

REPORT INFORMATION
  Report Type: 
  Country: None (occurrence: None)
  Receive Date: 20110502
  Receipt Date: 20110427
  Transmission Date: 20111010
  Serious: Yes (Life-Threatening, Other)
  Sender: FDA-Public Use
  Company Number: PHHY2011US28839

PATIENT
  Sex: Female

DRUGS (2)
  1. SANDOSTATIN LAR [Suspect]
     Dosage: 30 MG, QMO
     Route: 030
  2. SANDOSTATIN LAR [Suspect]
     Indication: CARCINOID SYNDROME
     Dosage: 50 MG, UNK
     Route: 030

REACTIONS (7)
  - WHEEZING [None]
  - DIARRHOEA [None]
  - CARCINOID TUMOUR PULMONARY [None]
  - FATIGUE [None]
  - DISABILITY [None]
  - NEOPLASM MALIGNANT [None]
  - DYSPNOEA [None]
